FAERS Safety Report 25116444 (Version 1)
Quarter: 2025Q1

REPORT INFORMATION
  Report Type: Spontaneous
  Country: US (occurrence: US)
  Receive Date: 20250325
  Receipt Date: 20250325
  Transmission Date: 20250408
  Serious: No
  Sender: TEVA
  Company Number: US-TEVA-VS-3309132

PATIENT
  Age: 15 Year
  Sex: Male

DRUGS (2)
  1. ISOTRETINOIN [Suspect]
     Active Substance: ISOTRETINOIN
     Indication: Product used for unknown indication
     Dosage: 2 CAPSULES BY MOUTH ONCE A DAY WITH FATTY FOOD
     Route: 048
     Dates: start: 202412
  2. CLARAVIS [Suspect]
     Active Substance: ISOTRETINOIN
     Indication: Product used for unknown indication
     Dosage: ONE CAPSULE ONCE A DAY WITH FOOD
     Route: 048
     Dates: start: 2025

REACTIONS (1)
  - Diarrhoea [Unknown]
